FAERS Safety Report 6990488-4 (Version None)
Quarter: 2010Q3

REPORT INFORMATION
  Report Type: 
  Country: None (occurrence: None)
  Receive Date: 20100916
  Receipt Date: 20100625
  Transmission Date: 20110219
  Serious: Yes (Other)
  Sender: FDA-Public Use
  Company Number: US-PFIZER INC-2010007698

PATIENT
  Sex: Female
  Weight: 72.5 kg

DRUGS (7)
  1. LYRICA [Suspect]
     Indication: PAIN
     Dosage: 75 MG, 2X/DAY
     Route: 048
     Dates: start: 20100112, end: 20100113
  2. LYRICA [Suspect]
     Indication: FIBROMYALGIA
  3. LYRICA [Suspect]
  4. MIRAPEX [Concomitant]
     Indication: PARKINSON'S DISEASE
     Dosage: UNK
  5. SINEMET [Concomitant]
     Indication: PARKINSON'S DISEASE
     Dosage: UNK
  6. CYMBALTA [Concomitant]
     Dosage: UNK
  7. LEVOTHYROXINE SODIUM [Concomitant]
     Dosage: UNK

REACTIONS (8)
  - DRUG INEFFECTIVE [None]
  - DYSPHORIA [None]
  - FATIGUE [None]
  - SEBACEOUS GLAND DISORDER [None]
  - SEBACEOUS GLANDS OVERACTIVITY [None]
  - SEBORRHOEA [None]
  - STRESS AT WORK [None]
  - THIRST [None]
